FAERS Safety Report 8187254-3 (Version None)
Quarter: 2012Q1

REPORT INFORMATION
  Report Type: 
  Country: None (occurrence: None)
  Receive Date: 20120302
  Receipt Date: 20120220
  Transmission Date: 20120608
  Serious: Yes (Hospitalization)
  Sender: FDA-Public Use
  Company Number: 2012AP000309

PATIENT
  Age: 8 Year
  Sex: Male

DRUGS (1)
  1. AZITHROMYCIN [Suspect]
     Indication: OROPHARYNGEAL PAIN

REACTIONS (10)
  - HEART RATE INCREASED [None]
  - SKIN PLAQUE [None]
  - PAPULE [None]
  - EPSTEIN-BARR VIRUS INFECTION [None]
  - LYMPHOCYTE MORPHOLOGY ABNORMAL [None]
  - EOSINOPHILIA [None]
  - DRUG RASH WITH EOSINOPHILIA AND SYSTEMIC SYMPTOMS [None]
  - HYPOTENSION [None]
  - PYREXIA [None]
  - PALPABLE PURPURA [None]
